FAERS Safety Report 25370050 (Version 1)
Quarter: 2025Q2

REPORT INFORMATION
  Report Type: Spontaneous
  Country: GB (occurrence: GB)
  Receive Date: 20250528
  Receipt Date: 20250528
  Transmission Date: 20250716
  Serious: Yes (Death)
  Sender: NOVARTIS
  Company Number: GB-002147023-NVSC2025GB085229

PATIENT

DRUGS (2)
  1. IMATINIB [Suspect]
     Active Substance: IMATINIB
     Indication: Myeloproliferative neoplasm
     Route: 065
  2. IMATINIB [Suspect]
     Active Substance: IMATINIB
     Indication: Platelet-derived growth factor receptor gene mutation

REACTIONS (4)
  - Transformation to acute myeloid leukaemia [Fatal]
  - Malignant neoplasm progression [Fatal]
  - Myeloproliferative neoplasm [Fatal]
  - Drug ineffective [Unknown]
